FAERS Safety Report 8628580 (Version 3)
Quarter: 2012Q4

REPORT INFORMATION
  Report Type: 
  Country: US (occurrence: US)
  Receive Date: 20120621
  Receipt Date: 20121026
  Transmission Date: 20130627
  Serious: Yes (Hospitalization, Other)
  Sender: FDA-Public Use
  Company Number: US-BAYER-2012-059017

PATIENT
  Age: 44 Year
  Sex: Female
  Weight: 96.6 kg

DRUGS (11)
  1. YAZ [Suspect]
  2. YASMIN [Suspect]
     Indication: PREMENSTRUAL SYNDROME
     Dosage: UNK
     Dates: start: 20050804, end: 20060123
  3. ZOLOFT [Concomitant]
     Dosage: 100 mg, every day
     Route: 048
  4. CALCIUM [Concomitant]
  5. MULTIVITAMINS [Concomitant]
  6. NAPROXEN [Concomitant]
  7. OMEGA-3 FATTY ACIDS [Concomitant]
  8. VITAMIN K [Concomitant]
  9. UNCODEABLE ^UNCLASSIFIABLE^ [Concomitant]
  10. FOLIC ACID [Concomitant]
  11. ASPIRIN [Concomitant]

REACTIONS (15)
  - Gallbladder injury [None]
  - Cholecystitis acute [None]
  - Pulmonary embolism [None]
  - Deep vein thrombosis [None]
  - Pain [None]
  - Injury [None]
  - Pain [None]
  - Vomiting [None]
  - Nausea [None]
  - Cellulitis [None]
  - Dyspnoea [None]
  - Cardiovascular disorder [None]
  - Oedema peripheral [None]
  - Aortic valve disease [None]
  - Oedema peripheral [None]
